FAERS Safety Report 7772323-X (Version None)
Quarter: 2011Q3

REPORT INFORMATION
  Report Type: 
  Country: None (occurrence: None)
  Receive Date: 20110922
  Receipt Date: 20100809
  Transmission Date: 20111222
  Serious: No
  Sender: FDA-Public Use
  Company Number: US-ASTRAZENECA-2008UW01190

PATIENT
  Age: 12970 Day
  Sex: Female

DRUGS (8)
  1. THORAZINE [Concomitant]
  2. SEROQUEL [Suspect]
     Route: 048
     Dates: start: 20050915
  3. SEROQUEL [Suspect]
     Route: 048
     Dates: start: 20050915
  4. SEROQUEL [Suspect]
     Route: 048
     Dates: start: 20050915
  5. SEROQUEL [Suspect]
     Indication: DEPRESSION
     Route: 048
     Dates: start: 20040401, end: 20060201
  6. SEROQUEL [Suspect]
     Indication: ANXIETY
     Route: 048
     Dates: start: 20040401, end: 20060201
  7. SEROQUEL [Suspect]
     Indication: BIPOLAR DISORDER
     Route: 048
     Dates: start: 20040401, end: 20060201
  8. CYMBALTA [Concomitant]
     Dates: start: 20051222

REACTIONS (7)
  - BLOOD CHOLESTEROL INCREASED [None]
  - HYPERLIPIDAEMIA [None]
  - GASTROINTESTINAL DISORDER [None]
  - BLOOD TRIGLYCERIDES INCREASED [None]
  - ADVERSE DRUG REACTION [None]
  - DIABETIC COMPLICATION [None]
  - TYPE 2 DIABETES MELLITUS [None]
